FAERS Safety Report 5155192-6 (Version None)
Quarter: 2006Q4

REPORT INFORMATION
  Report Type: 
  Country: None (occurrence: None)
  Receive Date: 20061121
  Receipt Date: 20061110
  Transmission Date: 20070319
  Serious: Yes (Hospitalization)
  Sender: FDA-Public Use
  Company Number: GB-JNJFOC-20060605136

PATIENT
  Age: 14 Year
  Sex: Male

DRUGS (2)
  1. CONCERTA [Suspect]
     Route: 048
  2. CONCERTA [Suspect]
     Indication: ATTENTION DEFICIT/HYPERACTIVITY DISORDER
     Dosage: EXPERIMENTAL OVERDOSE PRESCRIBED BY DOCTOR
     Route: 048

REACTIONS (3)
  - PARANOIA [None]
  - PRESCRIBED OVERDOSE [None]
  - PSYCHOTIC DISORDER [None]
